FAERS Safety Report 20701608 (Version 3)
Quarter: 2022Q2

REPORT INFORMATION
  Report Type: Spontaneous
  Country: US (occurrence: US)
  Receive Date: 20220412
  Receipt Date: 20220519
  Transmission Date: 20220720
  Serious: No
  Sender: FDA-Public Use
  Company Number: US-PFIZER INC-202200512596

PATIENT
  Age: 20 Year
  Sex: Female

DRUGS (2)
  1. EUCRISA [Suspect]
     Active Substance: CRISABOROLE
     Indication: Dermatitis
     Dosage: UNK (60-G TUBE QUANTITY 1 REFILLS 1)
  2. EUCRISA [Suspect]
     Active Substance: CRISABOROLE
     Dosage: APPLY TO AFFECTED AREA (NIPPLE) BID
     Route: 061

REACTIONS (6)
  - Drug ineffective [Unknown]
  - Condition aggravated [Unknown]
  - Suspected COVID-19 [Unknown]
  - Pain [Unknown]
  - Nipple pain [Unknown]
  - Impaired work ability [Unknown]
